FAERS Safety Report 11686336 (Version 8)
Quarter: 2019Q1

REPORT INFORMATION
  Report Type: Spontaneous
  Country: US (occurrence: US)
  Receive Date: 20151030
  Receipt Date: 20190320
  Transmission Date: 20190417
  Serious: No
  Sender: FDA-Public Use
  Company Number: PHEH2015US022060

PATIENT
  Sex: Female
  Weight: 117.91 kg

DRUGS (2)
  1. ZOFRAN [Suspect]
     Active Substance: ONDANSETRON HYDROCHLORIDE
     Indication: MORNING SICKNESS
     Dosage: UNK
     Route: 048
  2. ONDANSETRON. [Suspect]
     Active Substance: ONDANSETRON
     Indication: MORNING SICKNESS
     Dosage: 8 MG, PRN
     Route: 048
     Dates: start: 20101210, end: 2011

REACTIONS (7)
  - Anxiety [Unknown]
  - Emotional distress [Unknown]
  - Pain [Unknown]
  - Maternal exposure during pregnancy [Unknown]
  - Anhedonia [Unknown]
  - Injury [Unknown]
  - Product use in unapproved indication [Unknown]
